FAERS Safety Report 9836933 (Version 2)
Quarter: 2014Q1

REPORT INFORMATION
  Report Type: Spontaneous
  Country: US (occurrence: US)
  Receive Date: 20140123
  Receipt Date: 20140219
  Transmission Date: 20141002
  Serious: No
  Sender: FDA-Public Use
  Company Number: US-PFIZER INC-2014018615

PATIENT
  Age: 60 Year
  Sex: Female

DRUGS (7)
  1. EFFEXOR XR [Suspect]
     Dosage: UNK
  2. HYDROXYCHLOROQUINE [Concomitant]
     Indication: CUTANEOUS LUPUS ERYTHEMATOSUS
     Dosage: 200 MG, 2X/DAY
  3. CYCLOBENZAPRINE [Concomitant]
     Dosage: 5 MG, DAILY (AT HS)
  4. PRAVACHOL [Concomitant]
     Dosage: 40 MG, 1X/DAY
  5. TENORETIC [Concomitant]
     Dosage: 50/25, 1X/DAY
  6. ESTRADIOL [Concomitant]
     Dosage: 0.5 MG, 1X/DAY
  7. NORCO [Concomitant]
     Dosage: UNK

REACTIONS (1)
  - Drug hypersensitivity [Unknown]
